FAERS Safety Report 9772470 (Version 1)
Quarter: 2013Q4

REPORT INFORMATION
  Report Type: Spontaneous
  Country: FR (occurrence: FR)
  Receive Date: 20131219
  Receipt Date: 20131219
  Transmission Date: 20140711
  Serious: Yes (Hospitalization)
  Sender: FDA-Public Use
  Company Number: FR-009507513-1312FRA006159

PATIENT
  Age: 81 Year
  Sex: Female

DRUGS (7)
  1. TRUSOPT 20MG/ML, COLLYRE EN SOLUTION [Suspect]
     Indication: PRODUCT USED FOR UNKNOWN INDICATION
     Dosage: 1 DF, BID
     Route: 047
  2. MIANSERIN HYDROCHLORIDE [Suspect]
     Indication: PRODUCT USED FOR UNKNOWN INDICATION
     Dosage: 30 MG, QD
     Route: 048
     Dates: end: 201309
  3. TIAPRIDAL [Suspect]
     Indication: PRODUCT USED FOR UNKNOWN INDICATION
     Dosage: 5 DF, TID
     Route: 048
     Dates: end: 201309
  4. LAMOTRIGINE [Suspect]
     Indication: PRODUCT USED FOR UNKNOWN INDICATION
     Dosage: 50 MG, QD
     Route: 048
  5. INEXIUM [Suspect]
     Indication: PRODUCT USED FOR UNKNOWN INDICATION
     Dosage: 1 DF, QD
     Route: 048
  6. KARDEGIC [Concomitant]
     Dosage: 1 DF, QD
     Route: 048
  7. XALATAN [Concomitant]
     Dosage: 1 DF, BID
     Route: 047
     Dates: end: 201309

REACTIONS (1)
  - Somnolence [Recovered/Resolved]
